FAERS Safety Report 5865234-8 (Version None)
Quarter: 2008Q3

REPORT INFORMATION
  Report Type: 
  Country: None (occurrence: None)
  Receive Date: 20080829
  Receipt Date: 20080827
  Transmission Date: 20090109
  Serious: Yes (Other)
  Sender: FDA-Public Use
  Company Number: B0534796A

PATIENT
  Age: 83 Year
  Sex: Male

DRUGS (1)
  1. DILATREND [Suspect]
     Indication: STENT PLACEMENT
     Dosage: 3.125MG TWICE PER DAY
     Route: 065
     Dates: start: 20030101

REACTIONS (3)
  - CONJUNCTIVITIS [None]
  - MUSCLE ATROPHY [None]
  - MUSCULAR WEAKNESS [None]
